FAERS Safety Report 8547764-3 (Version None)
Quarter: 2012Q3

REPORT INFORMATION
  Report Type: 
  Country: None (occurrence: None)
  Receive Date: 20120727
  Receipt Date: 20120301
  Transmission Date: 20120928
  Serious: Yes (Hospitalization)
  Sender: FDA-Public Use
  Company Number: US-ASTRAZENECA-2011SE77822

PATIENT
  Age: 54 Year
  Sex: Female
  Weight: 97.5 kg

DRUGS (1)
  1. SEROQUEL [Suspect]
     Indication: ANXIETY
     Dosage: 100 MG IN THE MORNING, 100 MG NOON AND 300 MG IN THE EVENING
     Route: 048

REACTIONS (2)
  - ANXIETY [None]
  - DYSPEPSIA [None]
